FAERS Safety Report 14704116 (Version 2)
Quarter: 2018Q4

REPORT INFORMATION
  Report Type: Spontaneous
  Country: FR (occurrence: FR)
  Receive Date: 20180402
  Receipt Date: 20181010
  Transmission Date: 20190204
  Serious: Yes (Congenital Anomaly, Other)
  Sender: FDA-Public Use
  Company Number: FR-GLAXOSMITHKLINE-FR2018050549

PATIENT
  Sex: Female
  Weight: 1 kg

DRUGS (3)
  1. ASPEGIC [ACETYLSALICYLATE LYSINE] [Suspect]
     Active Substance: ASPIRIN DL-LYSINE
     Indication: HEART DISEASE CONGENITAL
     Dosage: UNK
     Route: 064
     Dates: start: 201708, end: 20180216
  2. LAMICTAL [Suspect]
     Active Substance: LAMOTRIGINE
     Indication: EPILEPSY
     Dosage: UNK
     Route: 064
     Dates: start: 20170702, end: 20180216
  3. ACIDE FOLIQUE [Concomitant]
     Active Substance: FOLIC ACID
     Indication: PRODUCT USED FOR UNKNOWN INDICATION
     Dosage: UNK
     Route: 064
     Dates: start: 201708, end: 20180216

REACTIONS (3)
  - Heart disease congenital [Not Recovered/Not Resolved]
  - Anomalous pulmonary venous connection [Not Recovered/Not Resolved]
  - Cleft lip [Recovered/Resolved]

NARRATIVE: CASE EVENT DATE: 20180216
